FAERS Safety Report 5027528-8 (Version None)
Quarter: 2006Q2

REPORT INFORMATION
  Report Type: 
  Country: None (occurrence: None)
  Receive Date: 20060616
  Receipt Date: 20060607
  Transmission Date: 20061013
  Serious: Yes (Hospitalization)
  Sender: FDA-Public Use
  Company Number: NL-JNJFOC-20060601996

PATIENT
  Sex: Female
  Weight: 40 kg

DRUGS (5)
  1. REMICADE [Suspect]
     Route: 042
  2. REMICADE [Suspect]
     Route: 042
  3. REMICADE [Suspect]
     Indication: CROHN'S DISEASE
     Route: 042
  4. METHOTREXATE [Concomitant]
     Indication: CROHN'S DISEASE
     Route: 065
  5. FOLIC ACID [Concomitant]
     Route: 065

REACTIONS (1)
  - CYTOMEGALOVIRUS INFECTION [None]
